FAERS Safety Report 13537738 (Version 1)
Quarter: 2017Q2

REPORT INFORMATION
  Report Type: Spontaneous
  Country: US (occurrence: US)
  Receive Date: 20170511
  Receipt Date: 20170511
  Transmission Date: 20170830
  Serious: No
  Sender: FDA-Public Use
  Company Number: US-ACTELION-A-US2016-144908

PATIENT
  Age: 68 Year
  Sex: Female
  Weight: 85.26 kg

DRUGS (4)
  1. VELETRI [Suspect]
     Active Substance: EPOPROSTENOL
     Indication: PULMONARY ARTERIAL HYPERTENSION
     Dosage: 30.9 NG/KG, PER MIN
     Route: 042
     Dates: start: 20151026
  2. AMLODIPINE [Concomitant]
     Active Substance: AMLODIPINE BESYLATE
  3. VELETRI [Suspect]
     Active Substance: EPOPROSTENOL
     Dosage: 4.9 NG/KG, PER MIN
     Route: 042
  4. UPTRAVI [Concomitant]
     Active Substance: SELEXIPAG

REACTIONS (9)
  - Dizziness [Unknown]
  - Pruritus [Unknown]
  - Pulmonary hypertension [Unknown]
  - Chest pain [Unknown]
  - Headache [Unknown]
  - Pain in jaw [Unknown]
  - Fatigue [Unknown]
  - Application site erythema [Unknown]
  - Dyspnoea [Unknown]
